FAERS Safety Report 23302929 (Version 1)
Quarter: 2023Q4

REPORT INFORMATION
  Report Type: Spontaneous
  Country: US (occurrence: US)
  Receive Date: 20231215
  Receipt Date: 20231215
  Transmission Date: 20240109
  Serious: No
  Sender: FDA-Public Use
  Company Number: US-PRIMUS-2023-US-008925

PATIENT
  Age: 66 Year
  Sex: Male

DRUGS (2)
  1. IMPOYZ [Suspect]
     Active Substance: CLOBETASOL PROPIONATE
     Indication: Product use in unapproved indication
     Dosage: APPLY TWICE A DAY TO ARMS, LEGS
     Route: 061
  2. DEVICE [Suspect]
     Active Substance: DEVICE

REACTIONS (1)
  - Drug ineffective [Unknown]
